FAERS Safety Report 11059819 (Version 1)
Quarter: 2015Q2

REPORT INFORMATION
  Report Type: Spontaneous
  Country: US (occurrence: None)
  Receive Date: 20150422
  Receipt Date: 20150422
  Transmission Date: 20150821
  Serious: Yes (Death)
  Sender: FDA-Public Use
  Company Number: INS201504-000130

PATIENT
  Age: 66 Year

DRUGS (1)
  1. SUBSYS [Suspect]
     Active Substance: FENTANYL
     Dosage: 120 UNITS

REACTIONS (1)
  - Death [None]
